FAERS Safety Report 25031008 (Version 1)
Quarter: 2025Q1

REPORT INFORMATION
  Report Type: Spontaneous
  Country: ES (occurrence: ES)
  Receive Date: 20250303
  Receipt Date: 20250303
  Transmission Date: 20250409
  Serious: Yes (Hospitalization, Other)
  Sender: CHEPLAPHARM
  Company Number: ES-CHEPLA-2025002738

PATIENT
  Age: 68 Year
  Sex: Female

DRUGS (8)
  1. CAPECITABINE [Suspect]
     Active Substance: CAPECITABINE
     Indication: Small intestine carcinoma
  2. OXALIPLATIN [Suspect]
     Active Substance: OXALIPLATIN
     Indication: Small intestine carcinoma
  3. VANCOMYCIN [Suspect]
     Active Substance: VANCOMYCIN
  4. MEROPENEM [Suspect]
     Active Substance: MEROPENEM
  5. VORICONAZOLE [Suspect]
     Active Substance: VORICONAZOLE
     Indication: Aspergillus infection
     Dosage: 4 MG/KG EVERY 12 HOURS, FOLLOWING INITIAL LOADING DOSES?DAILY DOSE: 8 MILLIGRAM/KG
     Route: 042
  6. VORICONAZOLE [Suspect]
     Active Substance: VORICONAZOLE
     Indication: Aspergillus infection
     Route: 048
  7. VORICONAZOLE [Suspect]
     Active Substance: VORICONAZOLE
     Indication: Aspergillus infection
     Route: 048
  8. AMPHOTERICIN B [Suspect]
     Active Substance: AMPHOTERICIN B
     Indication: Aspergillus infection

REACTIONS (10)
  - Neutropenic colitis [Unknown]
  - Pancytopenia [Unknown]
  - Neutropenia [Unknown]
  - Thrombocytopenia [Unknown]
  - Bronchopulmonary aspergillosis [Recovered/Resolved]
  - Pneumonia [Unknown]
  - Intervertebral discitis [Recovered/Resolved]
  - Hepatotoxicity [Unknown]
  - Photosensitivity reaction [Unknown]
  - Off label use [Unknown]
